FAERS Safety Report 8998836 (Version 1)
Quarter: 2013Q1

REPORT INFORMATION
  Report Type: Spontaneous
  Country: US (occurrence: US)
  Receive Date: 20130103
  Receipt Date: 20130103
  Transmission Date: 20140127
  Serious: No
  Sender: FDA-Public Use
  Company Number: US-BIOGENIDEC-2012BI063489

PATIENT
  Age: 62 None
  Sex: Female

DRUGS (6)
  1. AVONEX [Suspect]
     Indication: MULTIPLE SCLEROSIS
     Route: 030
     Dates: start: 19990815
  2. AVONEX [Suspect]
     Indication: MULTIPLE SCLEROSIS
     Route: 030
     Dates: start: 2003
  3. CLONOPIN [Concomitant]
     Indication: DEPRESSION
  4. ZOLOFT [Concomitant]
     Indication: DEPRESSION
  5. DIVALPROEX [Concomitant]
     Indication: NEURALGIA
  6. GABAPENTIN [Concomitant]
     Indication: NEURALGIA

REACTIONS (9)
  - Thyroid mass [Unknown]
  - Thyroid neoplasm [Not Recovered/Not Resolved]
  - Pneumonia bacterial [Recovered/Resolved]
  - Oropharyngeal pain [Recovered/Resolved]
  - Laryngitis [Recovered/Resolved]
  - Painful respiration [Recovered/Resolved]
  - Chronic obstructive pulmonary disease [Not Recovered/Not Resolved]
  - Tremor [Not Recovered/Not Resolved]
  - Loss of control of legs [Not Recovered/Not Resolved]
